FAERS Safety Report 23622346 (Version 1)
Quarter: 2024Q1

REPORT INFORMATION
  Report Type: Spontaneous
  Country: US (occurrence: None)
  Receive Date: 20240312
  Receipt Date: 20240312
  Transmission Date: 20240409
  Serious: Yes (Hospitalization)
  Sender: FDA-Public Use
  Company Number: None

PATIENT
  Age: 66 Year
  Sex: Male
  Weight: 126.1 kg

DRUGS (4)
  1. SPRYCEL [Suspect]
     Active Substance: DASATINIB
     Dates: end: 20240222
  2. DEXAMETHASONE [Suspect]
     Active Substance: DEXAMETHASONE
     Dates: end: 20240222
  3. METHOTREXATE [Suspect]
     Active Substance: METHOTREXATE
     Dates: end: 20240215
  4. VINCRISTINE SULFATE [Suspect]
     Active Substance: VINCRISTINE SULFATE
     Dates: end: 20240218

REACTIONS (4)
  - Asthenia [None]
  - Chills [None]
  - Groin pain [None]
  - Diabetes mellitus [None]

NARRATIVE: CASE EVENT DATE: 20240222
